FAERS Safety Report 4806693-9 (Version None)
Quarter: 2005Q4

REPORT INFORMATION
  Report Type: 
  Country: None (occurrence: None)
  Receive Date: 20051019
  Receipt Date: 20050929
  Transmission Date: 20060501
  Serious: Yes (Hospitalization)
  Sender: FDA-Public Use
  Company Number: JP_050707082

PATIENT
  Age: 72 Year
  Sex: Female
  Weight: 44.9061 kg

DRUGS (3)
  1. EVISTA [Suspect]
     Indication: OSTEOPOROSIS
     Dosage: 60MG/1 EVERY OTHER DAY
     Dates: start: 20040709, end: 20050709
  2. NORVASC [Concomitant]
  3. ONEALFA(ALFACALCIFIDOL) [Concomitant]

REACTIONS (3)
  - HYPERSENSITIVITY [None]
  - PLEURISY [None]
  - PNEUMONITIS [None]
